FAERS Safety Report 11423154 (Version 1)
Quarter: 2015Q3

REPORT INFORMATION
  Report Type: Spontaneous
  Country: US (occurrence: None)
  Receive Date: 20150826
  Receipt Date: 20150826
  Transmission Date: 20151125
  Serious: No
  Sender: FDA-Public Use
  Company Number: None

PATIENT
  Age: 33 Year
  Sex: Male

DRUGS (1)
  1. TOBRAMYCIN. [Suspect]
     Active Substance: TOBRAMYCIN
     Indication: CYSTIC FIBROSIS
     Dosage: 260
     Route: 055
     Dates: start: 20150821, end: 20150821

REACTIONS (3)
  - Dyspnoea [None]
  - Chest discomfort [None]
  - Product substitution issue [None]

NARRATIVE: CASE EVENT DATE: 20150821
